FAERS Safety Report 25270012 (Version 3)
Quarter: 2025Q2

REPORT INFORMATION
  Report Type: Spontaneous
  Country: US (occurrence: US)
  Receive Date: 20250505
  Receipt Date: 20250527
  Transmission Date: 20250717
  Serious: Yes (Hospitalization, Other)
  Sender: SANDOZ
  Company Number: US-SANDOZ-SDZ2025US027819

PATIENT
  Age: 65 Year
  Sex: Female
  Weight: 77.2 kg

DRUGS (3)
  1. ALPELISIB [Suspect]
     Active Substance: ALPELISIB
     Indication: Endometrial cancer recurrent
     Dosage: 300 MG, QD, D1-28
     Route: 048
     Dates: start: 20250416
  2. FULVESTRANT [Suspect]
     Active Substance: FULVESTRANT
     Indication: Endometrial cancer recurrent
     Route: 030
     Dates: start: 20250416
  3. LORATADINE [Concomitant]
     Active Substance: LORATADINE
     Indication: Prophylaxis
     Dosage: UNK, QD
     Route: 065

REACTIONS (6)
  - Pneumonia [Unknown]
  - Pulmonary embolism [Not Recovered/Not Resolved]
  - Bronchitis [Unknown]
  - Thrombocytopenia [Unknown]
  - Rash maculo-papular [Not Recovered/Not Resolved]
  - Product use in unapproved indication [Unknown]

NARRATIVE: CASE EVENT DATE: 20250426
